FAERS Safety Report 4652617-7 (Version None)
Quarter: 2005Q2

REPORT INFORMATION
  Report Type: 
  Country: None (occurrence: None)
  Receive Date: 20050502
  Receipt Date: 20050420
  Transmission Date: 20051028
  Serious: Yes (Death)
  Sender: FDA-Public Use
  Company Number: S05-CAN-01569-01

PATIENT
  Age: 31 Year
  Sex: Female

DRUGS (1)
  1. TIAZAC [Suspect]
     Dosage: 10.08 G ONCE PO
     Route: 048
     Dates: start: 20050416, end: 20050416

REACTIONS (2)
  - INTENTIONAL MISUSE [None]
  - OVERDOSE [None]
